FAERS Safety Report 8110095-X (Version None)
Quarter: 2012Q1

REPORT INFORMATION
  Report Type: 
  Country: None (occurrence: None)
  Receive Date: 20120202
  Receipt Date: 20120104
  Transmission Date: 20120608
  Serious: Yes (Death)
  Sender: FDA-Public Use
  Company Number: US-COVIDIEN/TYCO HEALTHCARE/MALLINCKRODT-T201200139

PATIENT
  Age: 13 Year
  Sex: Female

DRUGS (8)
  1. LORAZEPAM [Suspect]
     Route: 048
  2. OXCARBAZEPINE [Suspect]
     Route: 048
  3. QUETIAPINE [Suspect]
     Route: 048
  4. FLUOXETINE [Suspect]
     Route: 048
  5. TEMAZEPAM [Suspect]
     Route: 048
  6. TRAZODONE HCL [Suspect]
     Route: 048
  7. OLANZAPINE [Suspect]
     Route: 048
  8. ZOLPIDEM [Suspect]
     Route: 048

REACTIONS (3)
  - CARDIAC ARREST [None]
  - RESPIRATORY ARREST [None]
  - CARDIO-RESPIRATORY ARREST [None]
